FAERS Safety Report 5036725-7 (Version None)
Quarter: 2006Q2

REPORT INFORMATION
  Report Type: 
  Country: None (occurrence: None)
  Receive Date: 20060616
  Receipt Date: 20060301
  Transmission Date: 20061013
  Serious: No
  Sender: FDA-Public Use
  Company Number: 2006RL000066

PATIENT
  Age: 52 Year
  Sex: Male
  Weight: 86.1834 kg

DRUGS (2)
  1. OMACOR [Suspect]
     Dosage: 2 GM; QD; PO
     Route: 048
     Dates: start: 20060222, end: 20060224
  2. PROTONIX [Concomitant]

REACTIONS (9)
  - CHILLS [None]
  - COUGH [None]
  - DYSGEUSIA [None]
  - ERUCTATION [None]
  - INFLUENZA [None]
  - MYALGIA [None]
  - PYREXIA [None]
  - SINUS CONGESTION [None]
  - TREATMENT NONCOMPLIANCE [None]
